FAERS Safety Report 19970341 (Version 1)
Quarter: 2021Q4

REPORT INFORMATION
  Report Type: Spontaneous
  Country: US (occurrence: US)
  Receive Date: 20211020
  Receipt Date: 20211020
  Transmission Date: 20220303
  Serious: No
  Sender: FDA-Public Use
  Company Number: US-BIOVITRUM-2021US9223

PATIENT
  Sex: Male
  Weight: 7 kg

DRUGS (3)
  1. SYNAGIS [Suspect]
     Active Substance: PALIVIZUMAB
     Indication: Respiratory syncytial virus infection
     Dosage: 100 MG/1ML VL LIQUID
     Route: 030
     Dates: start: 20210921
  2. FAMOTIDINE [Concomitant]
     Active Substance: FAMOTIDINE
  3. IRON\VITAMINS [Concomitant]
     Active Substance: IRON\VITAMINS

REACTIONS (4)
  - Dyspnoea [Unknown]
  - Cough [Unknown]
  - Wheezing [Unknown]
  - Hypersensitivity [Unknown]
